FAERS Safety Report 5655272-2 (Version None)
Quarter: 2008Q1

REPORT INFORMATION
  Report Type: 
  Country: None (occurrence: None)
  Receive Date: 20080307
  Receipt Date: 20080229
  Transmission Date: 20080703
  Serious: Yes (Hospitalization)
  Sender: FDA-Public Use
  Company Number: B0510254A

PATIENT
  Age: 77 Year
  Sex: Male

DRUGS (3)
  1. VENTOLIN [Suspect]
     Indication: ASTHMA
     Dosage: 100MCG AS REQUIRED
     Route: 055
     Dates: start: 19800101
  2. RAMIPRIL [Concomitant]
  3. DOXEPIN HCL [Concomitant]

REACTIONS (1)
  - HAEMOPTYSIS [None]
